FAERS Safety Report 14992818 (Version 1)
Quarter: 2018Q2

REPORT INFORMATION
  Report Type: Spontaneous
  Country: US (occurrence: US)
  Receive Date: 20180517
  Receipt Date: 20180517
  Transmission Date: 20180711
  Serious: No
  Sender: FDA-Public Use
  Company Number: None

PATIENT
  Sex: Female

DRUGS (2)
  1. MYCOPHENOLATE TAB 500MG GENENTECH [Suspect]
     Active Substance: MYCOPHENOLATE SODIUM
     Indication: DERMATOMYOSITIS
     Route: 048
     Dates: start: 201509
  2. MYCOPHENOLATE TAB 500MG GENENTECH [Suspect]
     Active Substance: MYCOPHENOLATE SODIUM
     Indication: POLYMYOSITIS
     Route: 048
     Dates: start: 201509

REACTIONS (1)
  - Nausea [None]
